FAERS Safety Report 12450259 (Version 1)
Quarter: 2016Q2

REPORT INFORMATION
  Report Type: Spontaneous
  Country: US (occurrence: None)
  Receive Date: 20160608
  Receipt Date: 20160608
  Transmission Date: 20160815
  Serious: Yes (Other)
  Sender: FDA-Public Use
  Company Number: None

PATIENT
  Age: 57 Year
  Sex: Male
  Weight: 83.92 kg

DRUGS (2)
  1. ADVIL [Concomitant]
     Active Substance: IBUPROFEN
  2. CLONAZEPAM 1 MG, 1 MG PUREPAC (ACTAVIS) [Suspect]
     Active Substance: CLONAZEPAM
     Indication: ANXIETY
     Dosage: 30 TABLET(S) AT BEDTIME TAKEN BY MOUTH
     Route: 048
     Dates: start: 20160606, end: 20160607

REACTIONS (4)
  - Vertigo [None]
  - Product substitution issue [None]
  - Nausea [None]
  - Product contamination [None]

NARRATIVE: CASE EVENT DATE: 20160607
